FAERS Safety Report 7256376-3 (Version None)
Quarter: 2011Q1

REPORT INFORMATION
  Report Type: 
  Country: None (occurrence: None)
  Receive Date: 20110129
  Receipt Date: 20100707
  Transmission Date: 20110831
  Serious: No
  Sender: FDA-Public Use
  Company Number: US-ABBOTT-10P-163-0656409-00

PATIENT
  Sex: Male
  Weight: 90.8 kg

DRUGS (2)
  1. HUMIRA [Suspect]
     Indication: OSTEOARTHRITIS
     Route: 058
     Dates: start: 20080101, end: 20080301
  2. HUMIRA [Suspect]
     Route: 058
     Dates: start: 20080301

REACTIONS (3)
  - PAIN [None]
  - DRUG INEFFECTIVE [None]
  - INJECTION SITE PAIN [None]
